FAERS Safety Report 21362911 (Version 1)
Quarter: 2022Q3

REPORT INFORMATION
  Report Type: Spontaneous
  Country: MY (occurrence: None)
  Receive Date: 20220922
  Receipt Date: 20220922
  Transmission Date: 20221027
  Serious: Yes (Other)
  Sender: FDA-Public Use
  Company Number: MY-ROCHE-3181714

PATIENT
  Age: 76 Year
  Sex: Male

DRUGS (9)
  1. RITUXIMAB [Suspect]
     Active Substance: RITUXIMAB
     Indication: High-grade B-cell lymphoma
     Dosage: 2 CYCLES
     Route: 041
     Dates: start: 20220518, end: 20220715
  2. BENDAMUSTINE [Suspect]
     Active Substance: BENDAMUSTINE
     Indication: High-grade B-cell lymphoma
     Dosage: 3 CYCLES
     Route: 065
     Dates: start: 20220317, end: 20220427
  3. DOXORUBICIN [Suspect]
     Active Substance: DOXORUBICIN
     Indication: High-grade B-cell lymphoma
     Route: 065
     Dates: start: 20220518, end: 20220715
  4. VINCRISTINE [Suspect]
     Active Substance: VINCRISTINE
     Indication: High-grade B-cell lymphoma
     Route: 065
     Dates: start: 20220518, end: 20220715
  5. PREDNISONE [Suspect]
     Active Substance: PREDNISONE
     Indication: High-grade B-cell lymphoma
     Route: 065
     Dates: start: 20220518, end: 20220715
  6. GEMCITABINE [Suspect]
     Active Substance: GEMCITABINE
     Indication: High-grade B-cell lymphoma
     Route: 065
     Dates: start: 20220824, end: 20220831
  7. DEXAMETHASONE [Suspect]
     Active Substance: DEXAMETHASONE
     Indication: High-grade B-cell lymphoma
     Route: 065
     Dates: start: 20220824, end: 20220831
  8. CYCLOPHOSPHAMIDE [Suspect]
     Active Substance: CYCLOPHOSPHAMIDE
     Indication: High-grade B-cell lymphoma
     Route: 065
     Dates: start: 20220518, end: 20220715
  9. CARBOPLATIN [Suspect]
     Active Substance: CARBOPLATIN
     Indication: High-grade B-cell lymphoma
     Route: 065
     Dates: start: 20220824, end: 20220831

REACTIONS (2)
  - Jaundice cholestatic [Unknown]
  - Therapy partial responder [Unknown]
